FAERS Safety Report 23321204 (Version 1)
Quarter: 2023Q4

REPORT INFORMATION
  Report Type: Report from Study
  Country: US (occurrence: None)
  Receive Date: 20231220
  Receipt Date: 20231220
  Transmission Date: 20240110
  Serious: Yes (Other)
  Sender: FDA-Public Use
  Company Number: 2023A236938

PATIENT
  Age: 72 Year
  Sex: Female

DRUGS (13)
  1. CALQUENCE [Suspect]
     Active Substance: ACALABRUTINIB
     Indication: B-cell lymphoma
     Route: 048
     Dates: start: 20210109
  2. METOPROLOL TARTRATE [Suspect]
     Active Substance: METOPROLOL TARTRATE
  3. ACALABRUTINIB [Concomitant]
     Active Substance: ACALABRUTINIB
  4. ASPIRIN [Concomitant]
     Active Substance: ASPIRIN
  5. ANORO ELLIPTA [Concomitant]
     Active Substance: UMECLIDINIUM BROMIDE\VILANTEROL TRIFENATATE
     Dosage: 62.5 MCG-25 MCG/INH INHALATION POWDER
  6. BUPROPION [Concomitant]
     Active Substance: BUPROPION
     Dosage: 150 MG/24 HOURS
  7. CELECOXIB [Concomitant]
     Active Substance: CELECOXIB
  8. GRALISE [Concomitant]
     Active Substance: GABAPENTIN
     Dosage: 600 MG/24 HOURS
  9. ISOSORBIDE MONONITRATE [Concomitant]
     Active Substance: ISOSORBIDE MONONITRATE
  10. LORAZEPAM [Concomitant]
     Active Substance: LORAZEPAM
  11. MEMANTINE [Concomitant]
     Active Substance: MEMANTINE
  12. MORPHINE [Concomitant]
     Active Substance: MORPHINE
     Dosage: 15MG/8 HR
  13. GABAPENTIN [Concomitant]
     Active Substance: GABAPENTIN

REACTIONS (32)
  - Transient ischaemic attack [Unknown]
  - Mass [Unknown]
  - Dementia [Unknown]
  - Chronic kidney disease [Unknown]
  - Thyroid mass [Unknown]
  - Abdominal pain [Unknown]
  - Immunodeficiency common variable [Unknown]
  - Anxiety [Unknown]
  - Arthritis [Unknown]
  - Spinal osteoarthritis [Unknown]
  - Chest pain [Unknown]
  - Chronic obstructive pulmonary disease [Unknown]
  - Pain [Unknown]
  - Chronic respiratory failure [Unknown]
  - Depression [Unknown]
  - Essential tremor [Unknown]
  - Hyperlipidaemia [Unknown]
  - Hypertension [Unknown]
  - Hypogammaglobulinaemia [Unknown]
  - Insomnia [Unknown]
  - Back pain [Unknown]
  - Lymphoma [Unknown]
  - Anaemia macrocytic [Unknown]
  - Memory impairment [Unknown]
  - Neuropathy peripheral [Unknown]
  - Obstructive sleep apnoea syndrome [Unknown]
  - Overweight [Unknown]
  - Palpitations [Unknown]
  - Peptic ulcer [Unknown]
  - Syncope [Unknown]
  - Urinary incontinence [Unknown]
  - Skin papilloma [Unknown]
